FAERS Safety Report 22269830 (Version 2)
Quarter: 2023Q2

REPORT INFORMATION
  Report Type: Spontaneous
  Country: US (occurrence: US)
  Receive Date: 20230501
  Receipt Date: 20230501
  Transmission Date: 20230722
  Serious: No
  Sender: FDA-Public Use
  Company Number: US-ABBVIE-4742942

PATIENT
  Age: 40 Year
  Sex: Female

DRUGS (1)
  1. UPADACITINIB [Suspect]
     Active Substance: UPADACITINIB
     Indication: Pruritus
     Route: 065

REACTIONS (3)
  - Off label use [Unknown]
  - Dermatitis acneiform [Unknown]
  - Pain of skin [Unknown]
